FAERS Safety Report 7762299-3 (Version None)
Quarter: 2011Q3

REPORT INFORMATION
  Report Type: 
  Country: None (occurrence: None)
  Receive Date: 20110920
  Receipt Date: 20110916
  Transmission Date: 20111222
  Serious: Yes (Hospitalization)
  Sender: FDA-Public Use
  Company Number: CO-ROCHE-802909

PATIENT
  Sex: Male

DRUGS (1)
  1. CAPECITABINE [Suspect]
     Indication: COLORECTAL CANCER
     Dosage: FREQ :QD
     Route: 048
     Dates: start: 20110224, end: 20110901

REACTIONS (3)
  - ABDOMINAL PAIN [None]
  - HYPOGLYCAEMIA [None]
  - CONSTIPATION [None]
